FAERS Safety Report 20432400 (Version 1)
Quarter: 2022Q1

REPORT INFORMATION
  Report Type: Spontaneous
  Country: CA (occurrence: CA)
  Receive Date: 20220204
  Receipt Date: 20220204
  Transmission Date: 20220423
  Serious: Yes (Life-Threatening, Other)
  Sender: FDA-Public Use
  Company Number: CA-TEVA-2022-CA-2004014

PATIENT
  Age: 42 Year
  Sex: Female

DRUGS (6)
  1. FENTANYL [Suspect]
     Active Substance: FENTANYL
     Indication: Analgesic therapy
     Route: 065
  2. BUPIVACAINE HYDROCHLORIDE [Suspect]
     Active Substance: BUPIVACAINE HYDROCHLORIDE
     Indication: Analgesic therapy
     Route: 008
  3. INSULIN LENTE [Concomitant]
  4. IRON [Concomitant]
     Active Substance: IRON
  5. OXYTOCIN [Concomitant]
     Active Substance: OXYTOCIN
  6. PRENATAL MULTIPLE VITAMIN [Concomitant]

REACTIONS (2)
  - Bradycardia foetal [Recovered/Resolved]
  - Post procedural hypotension [Recovered/Resolved]
